FAERS Safety Report 7632095-6 (Version None)
Quarter: 2011Q3

REPORT INFORMATION
  Report Type: 
  Country: None (occurrence: None)
  Receive Date: 20110725
  Receipt Date: 20110725
  Transmission Date: 20111222
  Serious: No
  Sender: FDA-Public Use
  Company Number: None

PATIENT
  Sex: Male
  Weight: 113.39 kg

DRUGS (1)
  1. METHYLPHENIDATE HCL [Suspect]

REACTIONS (6)
  - ALCOHOL USE [None]
  - AGGRESSION [None]
  - DRUG WITHDRAWAL SYNDROME [None]
  - AGITATION [None]
  - PALPITATIONS [None]
  - DRUG EFFECT DECREASED [None]
